FAERS Safety Report 6413601-6 (Version None)
Quarter: 2009Q4

REPORT INFORMATION
  Report Type: 
  Country: None (occurrence: None)
  Receive Date: 20091026
  Receipt Date: 20091013
  Transmission Date: 20100525
  Serious: Yes (Other)
  Sender: FDA-Public Use
  Company Number: US-ABBOTT-09P-163-0602547-00

PATIENT
  Sex: Female
  Weight: 86.26 kg

DRUGS (11)
  1. HUMIRA [Suspect]
     Indication: CROHN'S DISEASE
     Dates: start: 20081101, end: 20081101
  2. CELEXA [Concomitant]
     Indication: DEPRESSION
     Route: 048
  3. KLONOPIN [Concomitant]
     Indication: DEPRESSION
     Route: 048
  4. KLONOPIN [Concomitant]
     Indication: ANXIETY
  5. NEURONTIN [Concomitant]
     Indication: NEURALGIA
     Route: 048
  6. PROCTOFOAM [Concomitant]
     Indication: DRUG USE FOR UNKNOWN INDICATION
     Route: 061
  7. PROSED [Concomitant]
     Indication: ANTI-INFECTIVE THERAPY
     Route: 048
  8. VITAMIN B-12 [Concomitant]
     Indication: DRUG USE FOR UNKNOWN INDICATION
  9. ALPRAZOLAM [Concomitant]
     Indication: ANXIETY
     Route: 048
  10. PHENERGAN HCL [Concomitant]
     Indication: NAUSEA
  11. ULTRACET [Concomitant]
     Indication: PAIN

REACTIONS (10)
  - BURNING SENSATION [None]
  - HEAD INJURY [None]
  - HEADACHE [None]
  - HYPERSENSITIVITY [None]
  - JOINT LOCK [None]
  - LOSS OF CONSCIOUSNESS [None]
  - MOBILITY DECREASED [None]
  - TOOTH FRACTURE [None]
  - VERTIGO [None]
  - VOMITING [None]
